FAERS Safety Report 5213675-4 (Version None)
Quarter: 2007Q1

REPORT INFORMATION
  Report Type: 
  Country: None (occurrence: None)
  Receive Date: 20070119
  Receipt Date: 20070111
  Transmission Date: 20070707
  Serious: Yes (Other)
  Sender: FDA-Public Use
  Company Number: FR-PFIZER INC-2007003709

PATIENT
  Sex: Female

DRUGS (5)
  1. TAHOR [Suspect]
     Dates: start: 20060220, end: 20070101
  2. COAPROVEL [Concomitant]
  3. ESBERIVEN [Concomitant]
  4. PARACETAMOL [Concomitant]
  5. FOSAVANCE [Concomitant]

REACTIONS (5)
  - ARTHRALGIA [None]
  - CHRONIC LYMPHOCYTIC LEUKAEMIA [None]
  - LYMPHOCYTE COUNT INCREASED [None]
  - MYALGIA [None]
  - PARAESTHESIA [None]
